FAERS Safety Report 5761248-7 (Version None)
Quarter: 2008Q2

REPORT INFORMATION
  Report Type: 
  Country: None (occurrence: None)
  Receive Date: 20080606
  Receipt Date: 20080530
  Transmission Date: 20081010
  Serious: Yes (Disabling)
  Sender: FDA-Public Use
  Company Number: ZA-ASTRAZENECA-2008SE02823

PATIENT
  Age: 75 Year
  Sex: Male
  Weight: 60 kg

DRUGS (6)
  1. CRESTOR [Suspect]
     Indication: MYOCARDIAL ISCHAEMIA
     Route: 048
     Dates: start: 20080423, end: 20080505
  2. CRESTOR [Suspect]
     Route: 048
  3. PLAVIX [Concomitant]
     Route: 048
     Dates: start: 20080423
  4. CARDICOR [Concomitant]
     Route: 048
     Dates: start: 20080423
  5. DISPIRIN CV [Concomitant]
     Route: 048
     Dates: start: 20080423
  6. PREXUM [Concomitant]
     Route: 048
     Dates: start: 20080501

REACTIONS (4)
  - JOINT STIFFNESS [None]
  - JOINT SWELLING [None]
  - MYALGIA [None]
  - PAIN IN EXTREMITY [None]
